FAERS Safety Report 9450233 (Version 1)
Quarter: 2013Q3

REPORT INFORMATION
  Report Type: Spontaneous
  Country: US (occurrence: US)
  Receive Date: 20130809
  Receipt Date: 20130809
  Transmission Date: 20140515
  Serious: Yes (Other)
  Sender: FDA-Public Use
  Company Number: US-FRI-1000047566

PATIENT
  Age: 26 Year
  Sex: Female

DRUGS (3)
  1. LINZESS [Suspect]
     Indication: CONSTIPATION
     Dosage: 145 MCG
     Route: 048
     Dates: start: 20130603, end: 201307
  2. PROZAC [Concomitant]
  3. DEPO-PROVERA [Concomitant]

REACTIONS (1)
  - Colitis microscopic [Unknown]
